FAERS Safety Report 8162584-X (Version None)
Quarter: 2012Q1

REPORT INFORMATION
  Report Type: 
  Country: None (occurrence: None)
  Receive Date: 20120224
  Receipt Date: 20120214
  Transmission Date: 20120608
  Serious: Yes (Hospitalization)
  Sender: FDA-Public Use
  Company Number: US-JNJFOC-20110812861

PATIENT
  Sex: Female
  Weight: 35.7 kg

DRUGS (9)
  1. CIMZIA [Concomitant]
     Dates: start: 20100514
  2. DOCUSATE SODIUM [Concomitant]
  3. FERROUS SULFATE TAB [Concomitant]
  4. REMICADE [Suspect]
     Indication: CROHN'S DISEASE
     Route: 042
     Dates: start: 20070802, end: 20080709
  5. REMICADE [Suspect]
     Indication: INFLAMMATORY BOWEL DISEASE
     Route: 042
     Dates: start: 20070802, end: 20080709
  6. OXYCODONE HCL [Concomitant]
  7. CITALOPRAM HYDROBROMIDE [Concomitant]
  8. MAGNESIUM OXIDE [Concomitant]
  9. HYDROCORTISONE [Concomitant]

REACTIONS (1)
  - CROHN'S DISEASE [None]
